FAERS Safety Report 13447020 (Version 1)
Quarter: 2017Q2

REPORT INFORMATION
  Report Type: Spontaneous
  Country: US (occurrence: US)
  Receive Date: 20170415
  Receipt Date: 20170415
  Transmission Date: 20170830
  Serious: No
  Sender: FDA-Public Use
  Company Number: None

PATIENT
  Age: 71 Year
  Sex: Male
  Weight: 63 kg

DRUGS (5)
  1. GLUCOPHAGE [Concomitant]
     Active Substance: METFORMIN HYDROCHLORIDE
  2. EFFIE [Concomitant]
  3. OSELTAMIVIR PHOSPHATE CAPSULES [Suspect]
     Active Substance: OSELTAMIVIR PHOSPHATE
     Indication: INFLUENZA
     Dosage: ?          QUANTITY:1 CAPSULE(S);?
     Route: 048
     Dates: start: 20170407, end: 20170410
  4. ASPIRIN. [Concomitant]
     Active Substance: ASPIRIN
  5. LIVLO [Concomitant]

REACTIONS (2)
  - Dyspnoea [None]
  - Insomnia [None]

NARRATIVE: CASE EVENT DATE: 20170412
